FAERS Safety Report 20483816 (Version 1)
Quarter: 2022Q1

REPORT INFORMATION
  Report Type: Spontaneous
  Country: GB (occurrence: GB)
  Receive Date: 20220217
  Receipt Date: 20220217
  Transmission Date: 20220423
  Serious: Yes (Other)
  Sender: FDA-Public Use
  Company Number: GB-Accord-254056

PATIENT
  Age: 62 Year
  Sex: Female

DRUGS (4)
  1. PACLITAXEL [Suspect]
     Active Substance: PACLITAXEL
     Indication: Ovarian cancer stage III
     Dosage: 6 CYCLES OF THREE WEEKLY 175MG/M2
  2. LETROZOLE [Concomitant]
     Active Substance: LETROZOLE
  3. PANTOPRAZOLE [Concomitant]
     Active Substance: PANTOPRAZOLE
  4. INDOMETHACIN [Concomitant]
     Active Substance: INDOMETHACIN

REACTIONS (5)
  - Epiretinal membrane [Recovering/Resolving]
  - Retinal phototoxicity [Recovering/Resolving]
  - Macular hole [Recovering/Resolving]
  - Neuropathy peripheral [Recovering/Resolving]
  - Maculopathy [Recovering/Resolving]
